FAERS Safety Report 21855279 (Version 2)
Quarter: 2023Q1

REPORT INFORMATION
  Report Type: Spontaneous
  Country: US (occurrence: US)
  Receive Date: 20230112
  Receipt Date: 20230124
  Transmission Date: 20230418
  Serious: Yes (Other)
  Sender: FDA-Public Use
  Company Number: US-PFIZER INC-202300013428

PATIENT
  Age: 78 Year
  Sex: Male
  Weight: 63.5 kg

DRUGS (3)
  1. VYNDAMAX [Suspect]
     Active Substance: TAFAMIDIS
     Indication: Cardiac amyloidosis
     Dosage: 61 MG, 1X/DAY
     Route: 048
     Dates: end: 202301
  2. LISINOPRIL [Concomitant]
     Active Substance: LISINOPRIL
     Indication: Anticoagulant therapy
     Dosage: UNK
     Dates: start: 202212
  3. DILTIAZEM HYDROCHLORIDE [Concomitant]
     Active Substance: DILTIAZEM HYDROCHLORIDE
     Indication: Blood pressure abnormal
     Dosage: UNK
     Dates: start: 202212

REACTIONS (5)
  - Cardiac flutter [Unknown]
  - Heart rate abnormal [Unknown]
  - Influenza [Unknown]
  - Abdominal discomfort [Unknown]
  - Fall [Unknown]

NARRATIVE: CASE EVENT DATE: 20220901
